FAERS Safety Report 21349968 (Version 1)
Quarter: 2022Q3

REPORT INFORMATION
  Report Type: Spontaneous
  Country: US (occurrence: None)
  Receive Date: 20220917
  Receipt Date: 20220917
  Transmission Date: 20221027
  Serious: Yes (Hospitalization)
  Sender: FDA-Public Use
  Company Number: None

PATIENT
  Age: 75 Year
  Sex: Male

DRUGS (1)
  1. DROXIDOPA [Suspect]
     Active Substance: DROXIDOPA
     Indication: Orthostatic hypotension
     Dosage: OTHER QUANTITY : 5 CAPSULES ;?FREQUENCY : DAILY;?TAKE 3 CAPSULES BY MOUTH DAILY IN THE AM, THEN TAKE
     Route: 048
     Dates: start: 20210401

REACTIONS (2)
  - Cystitis [None]
  - Parkinson^s disease [None]

NARRATIVE: CASE EVENT DATE: 20220801
